FAERS Safety Report 10441644 (Version 1)
Quarter: 2014Q3

REPORT INFORMATION
  Report Type: Spontaneous
  Country: ES (occurrence: ES)
  Receive Date: 20140908
  Receipt Date: 20140908
  Transmission Date: 20150326
  Serious: Yes (Other)
  Sender: FDA-Public Use
  Company Number: ES-US-EMD SERONO, INC.-7318272

PATIENT
  Age: 11 Year
  Sex: Female

DRUGS (1)
  1. SAIZEN [Suspect]
     Active Substance: SOMATROPIN
     Indication: SMALL FOR DATES BABY
     Route: 058
     Dates: start: 20140425, end: 20140703

REACTIONS (1)
  - Papilloedema [Recovering/Resolving]

NARRATIVE: CASE EVENT DATE: 20140703
